FAERS Safety Report 17105951 (Version 1)
Quarter: 2019Q4

REPORT INFORMATION
  Report Type: Spontaneous
  Country: SE (occurrence: SE)
  Receive Date: 20191203
  Receipt Date: 20191203
  Transmission Date: 20200122
  Serious: Yes (Life-Threatening)
  Sender: FDA-Public Use
  Company Number: SE-MYLANLABS-2019M1116367

PATIENT
  Age: 83 Year
  Sex: Male

DRUGS (4)
  1. PROPOFOL. [Concomitant]
     Active Substance: PROPOFOL
     Dosage: UNK
     Dates: start: 20190619, end: 20190619
  2. FENTANYL. [Suspect]
     Active Substance: FENTANYL
     Indication: PRODUCT USED FOR UNKNOWN INDICATION
     Dosage: 100 MICROGRAM
     Dates: start: 20190619, end: 20190619
  3. ADRENALINE                         /00003901/ [Concomitant]
     Active Substance: EPINEPHRINE
     Dosage: UNK
     Dates: start: 20190619, end: 20190619
  4. ROPIVACAINE. [Suspect]
     Active Substance: ROPIVACAINE HYDROCHLORIDE
     Indication: PRODUCT USED FOR UNKNOWN INDICATION
     Dosage: 15 MILLILITER
     Dates: start: 20190619, end: 20190619

REACTIONS (2)
  - Respiratory depression [Unknown]
  - Accidental overdose [Unknown]

NARRATIVE: CASE EVENT DATE: 20190619
